FAERS Safety Report 9223573 (Version 2)
Quarter: 2013Q2

REPORT INFORMATION
  Report Type: Spontaneous
  Country: US (occurrence: US)
  Receive Date: 20130410
  Receipt Date: 20130617
  Transmission Date: 20140414
  Serious: Yes (Hospitalization)
  Sender: FDA-Public Use
  Company Number: US-GLAXOSMITHKLINE-A1019163A

PATIENT
  Sex: Female

DRUGS (5)
  1. FLOVENT [Suspect]
     Indication: ASTHMA
     Route: 055
     Dates: start: 20090120
  2. VENTOLIN [Suspect]
     Indication: ASTHMA
     Dosage: 90MCG UNKNOWN
     Route: 055
     Dates: start: 20090120
  3. SOLUMEDROL [Concomitant]
  4. BETAMETHASONE [Concomitant]
  5. SINGULAIR [Concomitant]

REACTIONS (6)
  - Asthma [Unknown]
  - Sinusitis [Unknown]
  - Overdose [Unknown]
  - Infection [Unknown]
  - Dyspnoea [Unknown]
  - Wheezing [Unknown]
